FAERS Safety Report 23831868 (Version 1)
Quarter: 2024Q2

REPORT INFORMATION
  Report Type: Spontaneous
  Country: FR (occurrence: FR)
  Receive Date: 20240508
  Receipt Date: 20240508
  Transmission Date: 20240716
  Serious: Yes (Other)
  Sender: FDA-Public Use
  Company Number: None

PATIENT
  Age: 10 Month
  Sex: Female
  Weight: 7.9 kg

DRUGS (3)
  1. VANCOMYCIN [Interacting]
     Active Substance: VANCOMYCIN
     Indication: Device related sepsis
     Dosage: UNK
     Route: 042
     Dates: start: 20240314
  2. HEPARIN [Interacting]
     Active Substance: HEPARIN SODIUM
     Indication: Cardiogenic shock
     Dosage: UNK
     Route: 042
  3. FUROSEMIDE [Concomitant]
     Active Substance: FUROSEMIDE
     Dosage: UNK
     Route: 042

REACTIONS (3)
  - Vascular device occlusion [Recovered/Resolved]
  - Incorrect route of product administration [Recovered/Resolved]
  - Labelled drug-drug interaction medication error [Recovered/Resolved]

NARRATIVE: CASE EVENT DATE: 20240314
